FAERS Safety Report 7770756-9 (Version None)
Quarter: 2011Q3

REPORT INFORMATION
  Report Type: 
  Country: None (occurrence: None)
  Receive Date: 20110922
  Receipt Date: 20110607
  Transmission Date: 20111222
  Serious: No
  Sender: FDA-Public Use
  Company Number: US-ASTRAZENECA-2011SE34596

PATIENT
  Age: 17752 Day
  Sex: Male

DRUGS (4)
  1. SEROQUEL XR [Suspect]
     Indication: SLEEP DISORDER
     Route: 048
     Dates: start: 20110528
  2. EXFORGE [Concomitant]
  3. SEROQUEL XR [Suspect]
     Indication: DEPRESSION
     Route: 048
     Dates: start: 20110528
  4. AMBIEN [Concomitant]

REACTIONS (2)
  - OFF LABEL USE [None]
  - SOMNOLENCE [None]
